FAERS Safety Report 4315516-6 (Version None)
Quarter: 2004Q1

REPORT INFORMATION
  Report Type: 
  Country: None (occurrence: None)
  Receive Date: 20040311
  Receipt Date: 20020516
  Transmission Date: 20041129
  Serious: Yes (Hospitalization, Disabling)
  Sender: FDA-Public Use
  Company Number: WAES 0205USA01980

PATIENT
  Age: 42 Year
  Sex: Female
  Weight: 133 kg

DRUGS (12)
  1. [THERAPY UNSPECIFIED] [Concomitant]
  2. ATENOLOL [Concomitant]
     Indication: HYPERTENSION
  3. ATENOLOL [Concomitant]
     Indication: ATRIAL TACHYCARDIA
  4. LONOX [Concomitant]
  5. HYDROCORTISONE [Concomitant]
  6. ZESTRIL [Concomitant]
     Indication: HYPERTENSION
  7. PAXIL [Concomitant]
  8. VIOXX [Suspect]
     Indication: FIBROMYALGIA
     Route: 048
     Dates: start: 20000728, end: 20001006
  9. VIOXX [Suspect]
     Route: 048
     Dates: start: 20000714, end: 20000815
  10. VIOXX [Suspect]
     Indication: SPONDYLITIS
     Route: 048
     Dates: start: 20000728, end: 20001006
  11. VIOXX [Suspect]
     Route: 048
     Dates: start: 20000714, end: 20000815
  12. TRAZODONE HYDROCHLORIDE [Concomitant]

REACTIONS (65)
  - ABDOMINAL PAIN UPPER [None]
  - ANAL FISSURE [None]
  - ANGINA PECTORIS [None]
  - ANXIETY [None]
  - ASTHENIA [None]
  - BACK INJURY [None]
  - BACK PAIN [None]
  - BALANCE DISORDER [None]
  - BINGE EATING [None]
  - BLOOD ARSENIC INCREASED [None]
  - BLOOD PRESSURE DECREASED [None]
  - BRONCHITIS [None]
  - BURSITIS [None]
  - CARDIOMEGALY [None]
  - CHEST PAIN [None]
  - CHEST WALL PAIN [None]
  - CHOKING [None]
  - CONSTIPATION [None]
  - COORDINATION ABNORMAL [None]
  - COUGH [None]
  - DIABETES MELLITUS [None]
  - DIARRHOEA [None]
  - DIASTOLIC DYSFUNCTION [None]
  - DISTURBANCE IN ATTENTION [None]
  - DIZZINESS POSTURAL [None]
  - DRY THROAT [None]
  - DYSPEPSIA [None]
  - DYSPHAGIA [None]
  - EAR PAIN [None]
  - FEELING ABNORMAL [None]
  - FEELING JITTERY [None]
  - GASTROOESOPHAGEAL REFLUX DISEASE [None]
  - HAEMODIALYSIS [None]
  - HAEMORRHAGE [None]
  - HEPATIC STEATOSIS [None]
  - HUNGER [None]
  - HYPERCHOLESTEROLAEMIA [None]
  - HYPOAESTHESIA ORAL [None]
  - INITIAL INSOMNIA [None]
  - INSOMNIA [None]
  - IRRITABLE BOWEL SYNDROME [None]
  - METABOLIC SYNDROME [None]
  - MIGRAINE [None]
  - MUSCLE RIGIDITY [None]
  - MUSCLE TWITCHING [None]
  - MYALGIA [None]
  - NAUSEA [None]
  - NEPHRITIS INTERSTITIAL [None]
  - NIGHT SWEATS [None]
  - NOCTURIA [None]
  - PALPITATIONS [None]
  - PANIC ATTACK [None]
  - PROCTALGIA [None]
  - RENAL FAILURE ACUTE [None]
  - SEPTIC SHOCK [None]
  - SINUSITIS [None]
  - SPEECH DISORDER [None]
  - TENDONITIS [None]
  - THERAPEUTIC AGENT TOXICITY [None]
  - TINNITUS [None]
  - TREMOR [None]
  - VENTRICULAR HYPERTROPHY [None]
  - VISION BLURRED [None]
  - VOMITING [None]
  - WEIGHT DECREASED [None]
